FAERS Safety Report 14859007 (Version 2)
Quarter: 2021Q3

REPORT INFORMATION
  Report Type: Spontaneous
  Country: US (occurrence: US)
  Receive Date: 20180508
  Receipt Date: 20210917
  Transmission Date: 20211014
  Serious: Yes (Disabling)
  Sender: FDA-Public Use
  Company Number: US-TEVA-820783USA

PATIENT
  Age: 48 Year
  Sex: Female
  Weight: 73.02 kg

DRUGS (16)
  1. DOCETAXEL SAGENT [Suspect]
     Active Substance: DOCETAXEL
     Indication: HER2 POSITIVE BREAST CANCER
     Dosage: EVERY 3 WEEKS
     Route: 065
     Dates: start: 20150624, end: 20150624
  2. DOCETAXEL ACCORD [Suspect]
     Active Substance: DOCETAXEL
     Indication: HER2 POSITIVE BREAST CANCER
     Dosage: EVERY 3 WEEKS
     Route: 065
     Dates: start: 20150604, end: 20150604
  3. DOCETAXEL ACCORD [Suspect]
     Active Substance: DOCETAXEL
     Dosage: EVERY 3 WEEKS
     Route: 065
     Dates: start: 20150814, end: 20150814
  4. DOCETAXEL ACCORD [Suspect]
     Active Substance: DOCETAXEL
     Dosage: EVERY 3 WEEKS
     Route: 065
     Dates: start: 20150803, end: 20150803
  5. DOCETAXEL ACCORD [Suspect]
     Active Substance: DOCETAXEL
     Dosage: EVERY 3 WEEKS
     Route: 065
     Dates: start: 20150825, end: 20150825
  6. HERCEPTIN [Concomitant]
     Active Substance: TRASTUZUMAB
     Indication: HER2 POSITIVE BREAST CANCER
     Dosage: EVERY 3 WEEKS, 6 CYCLICAL
     Route: 065
     Dates: start: 20150610, end: 20151001
  7. PANADOL [Concomitant]
     Active Substance: ACETAMINOPHEN
     Route: 065
     Dates: start: 20000101
  8. DOCETAXEL ACCORD [Suspect]
     Active Substance: DOCETAXEL
     Dosage: EVERY 3 WEEKS
     Route: 065
     Dates: start: 20150803, end: 20150803
  9. DOCETAXEL SANOFI AVENTIS [Suspect]
     Active Substance: DOCETAXEL
     Dosage: EVERY 3 WEEKS
     Route: 065
     Dates: start: 20150714, end: 20150714
  10. DOCETAXEL SANOFI AVENTIS [Suspect]
     Active Substance: DOCETAXEL
     Indication: HER2 POSITIVE BREAST CANCER
     Dosage: EVERY 3 WEEKS
     Route: 065
     Dates: start: 20150714, end: 20150714
  11. DOCETAXEL ACCORD [Suspect]
     Active Substance: DOCETAXEL
     Dosage: EVERY 3 WEEKS
     Route: 065
     Dates: start: 20150825, end: 20150825
  12. DOCETAXEL SAGENT [Suspect]
     Active Substance: DOCETAXEL
     Dosage: EVERY 3 WEEKS
     Route: 065
     Dates: start: 20150624, end: 20150624
  13. DOCETAXEL ACCORD [Suspect]
     Active Substance: DOCETAXEL
     Dosage: EVERY 3 WEEKS
     Route: 065
     Dates: start: 20150604, end: 20150604
  14. DOCETAXEL ACCORD [Suspect]
     Active Substance: DOCETAXEL
     Dosage: EVERY 3 WEEKS
     Route: 065
     Dates: start: 20150914, end: 20150914
  15. CARBOPLATIN. [Concomitant]
     Active Substance: CARBOPLATIN
     Indication: HER2 POSITIVE BREAST CANCER
     Dosage: EVERY 3 WEEKS 6 CYCLICAL
     Route: 065
     Dates: start: 20150610, end: 20151001
  16. ARIMIDEX [Concomitant]
     Active Substance: ANASTROZOLE
     Route: 065
     Dates: start: 19970101

REACTIONS (4)
  - Alopecia areata [Not Recovered/Not Resolved]
  - Madarosis [Not Recovered/Not Resolved]
  - Hair colour changes [Not Recovered/Not Resolved]
  - Hair texture abnormal [Not Recovered/Not Resolved]

NARRATIVE: CASE EVENT DATE: 20160401
